FAERS Safety Report 7390617-7 (Version None)
Quarter: 2011Q2

REPORT INFORMATION
  Report Type: 
  Country: None (occurrence: None)
  Receive Date: 20110404
  Receipt Date: 20110325
  Transmission Date: 20111010
  Serious: Yes (Death)
  Sender: FDA-Public Use
  Company Number: US-BIOGENIDEC-2011BI008974

PATIENT
  Age: 49 Year
  Sex: Female

DRUGS (3)
  1. TOPIRAMATE [Concomitant]
  2. BACLOFEN [Concomitant]
  3. AVONEX [Suspect]
     Indication: MULTIPLE SCLEROSIS
     Route: 030
     Dates: start: 19970801

REACTIONS (1)
  - CARDIAC ARREST [None]
